FAERS Safety Report 7570046-3 (Version None)
Quarter: 2011Q2

REPORT INFORMATION
  Report Type: 
  Country: None (occurrence: None)
  Receive Date: 20110624
  Receipt Date: 20110605
  Transmission Date: 20111010
  Serious: No
  Sender: FDA-Public Use
  Company Number: US-B.I. PHARMACEUTICALS,INC./RIDGEFIELD-2011-BP-14715BP

PATIENT
  Sex: Female

DRUGS (9)
  1. SEROQUEL [Concomitant]
     Indication: DEPRESSION
     Dosage: 150 MG
     Route: 048
  2. HYDROCODONE [Concomitant]
     Indication: PAIN
     Route: 048
     Dates: start: 20100101
  3. PRADAXA [Suspect]
     Indication: PULMONARY EMBOLISM
     Dosage: 300 MG
     Route: 048
     Dates: start: 20110602, end: 20110605
  4. ONDANSETRON [Concomitant]
     Indication: NAUSEA
     Dosage: 8 MG
     Route: 048
     Dates: start: 20100101
  5. AMLODIPINE [Concomitant]
     Indication: HYPERTENSION
     Dosage: 5 MG
     Route: 048
     Dates: start: 20100101
  6. NEURONTIN [Concomitant]
     Indication: NEURALGIA
     Dosage: 900 MG
     Route: 048
     Dates: start: 20100101, end: 20110501
  7. DIAZEPAM [Concomitant]
     Indication: ANXIETY
     Dosage: 15 MG
     Route: 048
     Dates: start: 20100101
  8. CITALOPRAM HYDROBROMIDE [Concomitant]
     Indication: DEPRESSION
     Dosage: 40 MG
     Route: 048
  9. VITAMIN TAB [Concomitant]
     Indication: SUPPLEMENTATION THERAPY

REACTIONS (3)
  - OESOPHAGEAL PAIN [None]
  - NAUSEA [None]
  - DECREASED APPETITE [None]
